FAERS Safety Report 7074360-X (Version None)
Quarter: 2010Q4

REPORT INFORMATION
  Report Type: 
  Country: None (occurrence: None)
  Receive Date: 20101029
  Receipt Date: 20101026
  Transmission Date: 20110411
  Serious: Yes (Hospitalization)
  Sender: FDA-Public Use
  Company Number: FR-BRISTOL-MYERS SQUIBB COMPANY-15270994

PATIENT
  Age: 67 Year
  Sex: Male
  Weight: 77 kg

DRUGS (5)
  1. SPRYCEL [Suspect]
     Indication: CHRONIC MYELOID LEUKAEMIA
     Dosage: 3DEC08-13JAN09.DOSE REDUCED TO 80MG 14JAN09-UNTIL NOW
     Route: 048
     Dates: start: 20081203
  2. DIAMICRON [Concomitant]
     Indication: TYPE 2 DIABETES MELLITUS
     Dosage: FROM LONG TIME
     Route: 048
  3. NEXIUM [Concomitant]
     Indication: GASTROOESOPHAGEAL REFLUX DISEASE
     Dates: start: 20081203
  4. MOTILIUM [Concomitant]
     Indication: GASTROOESOPHAGEAL REFLUX DISEASE
     Dosage: 1DF=3 TABLETS
     Route: 048
     Dates: start: 20081203
  5. OMIX [Concomitant]
     Indication: PROSTATIC ADENOMA
     Dosage: 1DF=1 TABLET
     Route: 048

REACTIONS (4)
  - ANAEMIA [None]
  - FATIGUE [None]
  - INJURY [None]
  - TENDON RUPTURE [None]
